FAERS Safety Report 6594897-7 (Version None)
Quarter: 2010Q1

REPORT INFORMATION
  Report Type: 
  Country: None (occurrence: None)
  Receive Date: 20100222
  Receipt Date: 20100210
  Transmission Date: 20100710
  Serious: Yes (Other)
  Sender: FDA-Public Use
  Company Number: HR-PFIZER INC-2010008381

PATIENT
  Age: 37 Year
  Sex: Female

DRUGS (2)
  1. XANAX [Suspect]
     Indication: DEPRESSION
     Dosage: 1 MG, 1X/DAY
     Route: 048
     Dates: start: 20090921, end: 20090930
  2. ZOLOFT [Concomitant]
     Dosage: 50 MG, 1X/DAY
     Route: 048

REACTIONS (5)
  - EYELID OEDEMA [None]
  - EYELID PTOSIS [None]
  - FACE OEDEMA [None]
  - HYPOAESTHESIA [None]
  - OEDEMA PERIPHERAL [None]
